FAERS Safety Report 7134772-2 (Version None)
Quarter: 2010Q4

REPORT INFORMATION
  Report Type: 
  Country: None (occurrence: None)
  Receive Date: 20101203
  Receipt Date: 20101125
  Transmission Date: 20110411
  Serious: Yes (Hospitalization)
  Sender: FDA-Public Use
  Company Number: US-B.I. PHARMACEUTICALS,INC./RIDGEFIELD-2010-DE-06617GD

PATIENT
  Sex: Female

DRUGS (1)
  1. BISACODYL [Suspect]

REACTIONS (9)
  - ABDOMINAL PAIN [None]
  - BODY MASS INDEX DECREASED [None]
  - DIARRHOEA [None]
  - DRUG ABUSE [None]
  - GASTRIC DILATATION [None]
  - INTESTINAL DILATATION [None]
  - SMALL INTESTINAL OBSTRUCTION [None]
  - SUPERIOR MESENTERIC ARTERY SYNDROME [None]
  - WEIGHT DECREASED [None]
